FAERS Safety Report 5885330-9 (Version None)
Quarter: 2008Q3

REPORT INFORMATION
  Report Type: 
  Country: None (occurrence: None)
  Receive Date: 20080915
  Receipt Date: 20080915
  Transmission Date: 20090109
  Serious: Yes (Other)
  Sender: FDA-Public Use
  Company Number: None

PATIENT
  Age: 35 Year
  Sex: Female
  Weight: 77.1115 kg

DRUGS (1)
  1. BUPROPRION 300MG WATSON [Suspect]
     Indication: PREMENSTRUAL SYNDROME
     Dosage: 300MG 1X/DAY PO
     Route: 048
     Dates: start: 20080829, end: 20080903

REACTIONS (1)
  - ADVERSE DRUG REACTION [None]
